FAERS Safety Report 8090352-6 (Version None)
Quarter: 2012Q1

REPORT INFORMATION
  Report Type: 
  Country: None (occurrence: None)
  Receive Date: 20120129
  Receipt Date: 20111130
  Transmission Date: 20120608
  Serious: No
  Sender: FDA-Public Use
  Company Number: US-ABBOTT-11P-163-0879414-00

PATIENT
  Sex: Male
  Weight: 89.892 kg

DRUGS (4)
  1. HUMIRA [Suspect]
     Indication: PSORIASIS
     Dates: start: 20100101
  2. ALLEGRA [Concomitant]
     Indication: HYPERSENSITIVITY
  3. PRILOSEC [Concomitant]
     Indication: GASTROOESOPHAGEAL REFLUX DISEASE
  4. FLONASE [Concomitant]
     Indication: HYPERSENSITIVITY

REACTIONS (1)
  - PAIN [None]
